FAERS Safety Report 17901960 (Version 1)
Quarter: 2020Q2

REPORT INFORMATION
  Report Type: Spontaneous
  Country: US (occurrence: US)
  Receive Date: 20200616
  Receipt Date: 20200616
  Transmission Date: 20200714
  Serious: No
  Sender: FDA-Public Use
  Company Number: US-VISTAPHARM, INC.-VER202002-000341

PATIENT
  Sex: Male

DRUGS (1)
  1. HYDROCODONE AND ACETAMINOPHEN [Suspect]
     Active Substance: ACETAMINOPHEN\HYDROCODONE
     Indication: PAIN
     Dosage: 15 ML EVERY THREE HOURS (3000 ML FOR THIRTY DAYS) BUT SOMETIMES TAKING EVERY FOUR HOURS
     Route: 048

REACTIONS (3)
  - Incorrect product administration duration [Unknown]
  - Product quality issue [Unknown]
  - Pain [Unknown]
